FAERS Safety Report 6316171-6 (Version None)
Quarter: 2009Q3

REPORT INFORMATION
  Report Type: 
  Country: None (occurrence: None)
  Receive Date: 20090820
  Receipt Date: 20090813
  Transmission Date: 20100115
  Serious: Yes (Hospitalization, Other)
  Sender: FDA-Public Use
  Company Number: US-JNJFOC-20090801889

PATIENT
  Sex: Female
  Weight: 67.13 kg

DRUGS (6)
  1. TOPAMAX [Suspect]
     Route: 048
  2. TOPAMAX [Suspect]
     Route: 048
  3. TOPAMAX [Suspect]
     Route: 048
  4. TOPAMAX [Suspect]
     Route: 048
  5. TOPAMAX [Suspect]
     Route: 048
  6. TOPAMAX [Suspect]
     Indication: MIGRAINE PROPHYLAXIS
     Route: 048

REACTIONS (19)
  - ABNORMAL SENSATION IN EYE [None]
  - ANXIETY [None]
  - BALANCE DISORDER [None]
  - CONFUSIONAL STATE [None]
  - DIZZINESS [None]
  - DRUG TOXICITY [None]
  - FALL [None]
  - HYPERVENTILATION [None]
  - HYPOAESTHESIA [None]
  - HYPOKINESIA [None]
  - INSOMNIA [None]
  - LOSS OF CONSCIOUSNESS [None]
  - NAUSEA [None]
  - PARAESTHESIA [None]
  - PERIPHERAL COLDNESS [None]
  - PHOTOPSIA [None]
  - TREMOR [None]
  - VISION BLURRED [None]
  - VISUAL IMPAIRMENT [None]
